FAERS Safety Report 9390416 (Version 1)
Quarter: 2013Q3

REPORT INFORMATION
  Report Type: Spontaneous
  Country: AU (occurrence: AU)
  Receive Date: 20130709
  Receipt Date: 20130709
  Transmission Date: 20140515
  Serious: Yes (Other)
  Sender: FDA-Public Use
  Company Number: PHHY2013AU071223

PATIENT
  Age: 41 Year
  Sex: Female

DRUGS (4)
  1. ZOLEDRONIC ACID [Suspect]
     Dosage: UNK UKN, UNK
  2. FUROSEMIDE [Suspect]
     Dosage: UNK UKN, UNK
  3. PAMIDRONATE DISODIUM SANDOZ [Suspect]
     Dosage: UNK
  4. AMILORIDE [Suspect]
     Dosage: UNK UKN, UNK

REACTIONS (1)
  - Hypercalcaemia [Unknown]
